FAERS Safety Report 20372448 (Version 1)
Quarter: 2022Q1

REPORT INFORMATION
  Report Type: Spontaneous
  Country: US (occurrence: None)
  Receive Date: 20220124
  Receipt Date: 20220124
  Transmission Date: 20220423
  Serious: No
  Sender: FDA-Public Use
  Company Number: US-MDD US Operations-SUP202112-002558

PATIENT
  Age: 16 Year
  Sex: Female

DRUGS (2)
  1. QELBREE [Suspect]
     Active Substance: VILOXAZINE HYDROCHLORIDE
     Indication: Product used for unknown indication
     Dosage: NOT PROVIDED
  2. TIZANIDINE [Concomitant]
     Active Substance: TIZANIDINE
     Dosage: NOT PROVIDED

REACTIONS (2)
  - Pain [Unknown]
  - Labelled drug-drug interaction issue [Unknown]
